FAERS Safety Report 16812363 (Version 1)
Quarter: 2019Q3

REPORT INFORMATION
  Report Type: Spontaneous
  Country: DE (occurrence: DE)
  Receive Date: 20190916
  Receipt Date: 20190916
  Transmission Date: 20191005
  Serious: Yes (Hospitalization, Other)
  Sender: FDA-Public Use
  Company Number: DE-MYLANLABS-2019M1085980

PATIENT
  Sex: Female

DRUGS (7)
  1. CYCLOPHOSPHAMIDE. [Suspect]
     Active Substance: CYCLOPHOSPHAMIDE
     Indication: B-CELL LYMPHOMA
     Dosage: 1282 MILLIGRAM, CYCLE, CYCLE 4) 1 X PER CYCLE)
     Route: 042
     Dates: start: 20160817
  2. BISOPROLOL [Concomitant]
     Active Substance: BISOPROLOL
     Indication: ARRHYTHMIA
     Dosage: UNK
     Dates: start: 20161002
  3. PEGFILGRASTIM [Suspect]
     Active Substance: PEGFILGRASTIM
     Indication: B-CELL LYMPHOMA
     Dosage: 6 MILLIGRAM, CYCLE,MOST RECENT CYCLE (CYCLE 4): 27/SEP/2016 (ONCE PER CYCLE)
     Route: 058
     Dates: start: 20160819
  4. VINCRISTINE [Suspect]
     Active Substance: VINCRISTINE
     Indication: B-CELL LYMPHOMA
     Dosage: 334 MILLIGRAM, CYCLE,MOST RECENT CYCLE (CYCLE 4): 27/SEP/2016 (1 X CYCLE
     Route: 042
     Dates: start: 20160817
  5. RITUXIMAB. [Suspect]
     Active Substance: RITUXIMAB
     Indication: B-CELL LYMPHOMA
     Dosage: 641 MILLIGRAM, CYCLE,MOST RECENT CYCLE (CYCLE 4): 27/SEP/2016
     Route: 042
     Dates: start: 20160816
  6. PREDNISOLONE. [Suspect]
     Active Substance: PREDNISOLONE
     Indication: B-CELL LYMPHOMA
     Dosage: 100 MILLIGRAM, CYCLE,1-6 MOST RECENT CYCLE (CYCLE 4): 27/SEP/2016 (DAY 1-5
     Route: 048
     Dates: start: 20160816
  7. DOXORUBICINE                       /00330901/ [Suspect]
     Active Substance: DOXORUBICIN
     Indication: B-CELL LYMPHOMA
     Dosage: 85 MILLIGRAM, CYCLE,MOST RECENT CYCLE (CYCLE 4): 27/SEP/2016
     Route: 042
     Dates: start: 20160817

REACTIONS (2)
  - Pulmonary embolism [Recovered/Resolved]
  - Chest discomfort [Unknown]

NARRATIVE: CASE EVENT DATE: 20161002
